FAERS Safety Report 6006980-5 (Version None)
Quarter: 2008Q4

REPORT INFORMATION
  Report Type: 
  Country: None (occurrence: None)
  Receive Date: 20081217
  Receipt Date: 20071210
  Transmission Date: 20090506
  Serious: No
  Sender: FDA-Public Use
  Company Number: US-ASTRAZENECA-2007UW28130

PATIENT
  Age: 65 Year
  Sex: Male
  Weight: 89.8 kg

DRUGS (7)
  1. CRESTOR [Suspect]
     Indication: BLOOD CHOLESTEROL INCREASED
     Route: 048
     Dates: start: 20070701
  2. FOSAMAX [Concomitant]
  3. ATENOLOL [Concomitant]
  4. ASPIRIN [Concomitant]
  5. FISH OIL [Concomitant]
  6. MULTI-VITAMIN [Concomitant]
  7. CALCIUM D [Concomitant]

REACTIONS (1)
  - HIGH DENSITY LIPOPROTEIN DECREASED [None]
